FAERS Safety Report 4452549-3 (Version None)
Quarter: 2004Q3

REPORT INFORMATION
  Report Type: 
  Country: None (occurrence: None)
  Receive Date: 20040813
  Receipt Date: 20040429
  Transmission Date: 20050211
  Serious: No
  Sender: FDA-Public Use
  Company Number: S04-USA-03389-01

PATIENT
  Age: 85 Year
  Sex: Female

DRUGS (4)
  1. NAMENDA [Suspect]
     Indication: DEMENTIA ALZHEIMER'S TYPE
     Dosage: 10 MG QD PO
     Route: 048
     Dates: start: 20040318, end: 20040429
  2. LOPRESSOR [Concomitant]
  3. SEROQUEL [Concomitant]
  4. SYNTHROID [Concomitant]

REACTIONS (1)
  - ANAEMIA [None]
